FAERS Safety Report 22394169 (Version 1)
Quarter: 2023Q2

REPORT INFORMATION
  Report Type: Spontaneous
  Country: US (occurrence: None)
  Receive Date: 20230531
  Receipt Date: 20230531
  Transmission Date: 20230721
  Serious: No
  Sender: FDA-Public Use
  Company Number: None

PATIENT
  Age: 47 Year
  Sex: Male

DRUGS (1)
  1. GLATIRAMER ACETATE [Suspect]
     Active Substance: GLATIRAMER ACETATE
     Indication: Multiple sclerosis
     Route: 058

REACTIONS (5)
  - Multiple sclerosis [None]
  - Fatigue [None]
  - Balance disorder [None]
  - Cognitive disorder [None]
  - Visual impairment [None]

NARRATIVE: CASE EVENT DATE: 20230430
